FAERS Safety Report 14126574 (Version 2)
Quarter: 2018Q1

REPORT INFORMATION
  Report Type: Report from Study
  Country: US (occurrence: US)
  Receive Date: 20171025
  Receipt Date: 20180102
  Transmission Date: 20180508
  Serious: Yes (Other)
  Sender: FDA-Public Use
  Company Number: US-GILEAD-2017-0298273

PATIENT
  Age: 79 Year
  Sex: Female

DRUGS (1)
  1. AMBRISENTAN [Suspect]
     Active Substance: AMBRISENTAN
     Indication: PULMONARY HYPERTENSION
     Dosage: 5 MG, QD
     Route: 065
     Dates: start: 20170913, end: 20171017

REACTIONS (5)
  - Blood pressure systolic increased [Unknown]
  - Nasal congestion [Unknown]
  - Hypotension [Unknown]
  - Blood pressure abnormal [Not Recovered/Not Resolved]
  - Treatment noncompliance [Unknown]
